FAERS Safety Report 23325763 (Version 2)
Quarter: 2025Q3

REPORT INFORMATION
  Report Type: Spontaneous
  Country: US (occurrence: US)
  Receive Date: 20231221
  Receipt Date: 20250725
  Transmission Date: 20251020
  Serious: Yes (Other)
  Sender: DAIICHI
  Company Number: US-DAIICHI SANKYO, INC.-DSU-2023-151716AA

PATIENT
  Age: 51 Year
  Sex: Female

DRUGS (2)
  1. ENHERTU [Suspect]
     Active Substance: FAM-TRASTUZUMAB DERUXTECAN-NXKI
     Indication: HER2 negative breast cancer
     Route: 065
     Dates: start: 20220613
  2. XGEVA [Suspect]
     Active Substance: DENOSUMAB
     Indication: HER2 negative breast cancer
     Route: 065
     Dates: start: 20220613

REACTIONS (1)
  - Metastases to central nervous system [Unknown]

NARRATIVE: CASE EVENT DATE: 20230601
